FAERS Safety Report 19099836 (Version 1)
Quarter: 2021Q2

REPORT INFORMATION
  Report Type: Spontaneous
  Country: US (occurrence: US)
  Receive Date: 20210406
  Receipt Date: 20210406
  Transmission Date: 20210717
  Serious: Yes (Hospitalization)
  Sender: FDA-Public Use
  Company Number: US-KERYX BIOPHARMACEUTICALS INC.-2021US008015

PATIENT
  Age: 40 Year
  Sex: Male
  Weight: 70 kg

DRUGS (1)
  1. AURYXIA [Suspect]
     Active Substance: TETRAFERRIC TRICITRATE DECAHYDRATE
     Indication: CHRONIC KIDNEY DISEASE
     Dosage: 2 GRAMS  (TABLETS), TID
     Route: 048
     Dates: start: 20200224, end: 20210207

REACTIONS (3)
  - Colitis [Unknown]
  - Abdominal pain [Unknown]
  - Fluid overload [Unknown]

NARRATIVE: CASE EVENT DATE: 20210207
